FAERS Safety Report 15233140 (Version 1)
Quarter: 2018Q3

REPORT INFORMATION
  Report Type: Spontaneous
  Country: GB (occurrence: GB)
  Receive Date: 20180802
  Receipt Date: 20180802
  Transmission Date: 20181010
  Serious: Yes (Hospitalization)
  Sender: FDA-Public Use
  Company Number: GB-TEVA-2018-GB-933631

PATIENT
  Age: 70 Year
  Sex: Male
  Weight: 71.4 kg

DRUGS (7)
  1. COCODAMOL [Concomitant]
     Active Substance: ACETAMINOPHEN\CODEINE PHOSPHATE
     Dosage: LONG TERM
     Dates: start: 201102
  2. THIAMINE [Concomitant]
     Active Substance: THIAMINE
     Dates: start: 20180328
  3. WARFARIN SODIUM. [Suspect]
     Active Substance: WARFARIN SODIUM
     Indication: ATRIAL FIBRILLATION
     Route: 048
     Dates: start: 20110221
  4. DOXYCYCLINE. [Concomitant]
     Active Substance: DOXYCYCLINE
     Dates: start: 20180604
  5. CARBOCISTEINE [Concomitant]
     Active Substance: CARBOCYSTEINE
     Dates: start: 20180606
  6. FUROSEMIDE. [Concomitant]
     Active Substance: FUROSEMIDE
     Dosage: LONG TERM
     Dates: start: 201102
  7. DIGOXIN. [Concomitant]
     Active Substance: DIGOXIN
     Dosage: LONG TERM
     Dates: start: 201102

REACTIONS (1)
  - Epistaxis [Recovering/Resolving]

NARRATIVE: CASE EVENT DATE: 20180628
